FAERS Safety Report 9393527 (Version 2)
Quarter: 2013Q3

REPORT INFORMATION
  Report Type: Spontaneous
  Country: CL (occurrence: CL)
  Receive Date: 20130710
  Receipt Date: 20130813
  Transmission Date: 20140515
  Serious: Yes (Other)
  Sender: FDA-Public Use
  Company Number: CL-GLAXOSMITHKLINE-A1031819A

PATIENT
  Age: 22 Year
  Sex: Male

DRUGS (6)
  1. BENLYSTA [Suspect]
     Indication: SYSTEMIC LUPUS ERYTHEMATOSUS
     Route: 042
     Dates: start: 20130503, end: 2013
  2. MYCOPHENOLATE [Concomitant]
  3. HYDROXYCHLOROQUINE [Concomitant]
  4. LOSARTAN [Concomitant]
  5. ENALAPRIL [Concomitant]
  6. PREDNISONE [Concomitant]

REACTIONS (3)
  - Renal injury [Recovering/Resolving]
  - Proteinuria [Recovering/Resolving]
  - Lupus nephritis [Unknown]
